FAERS Safety Report 10943917 (Version 5)
Quarter: 2015Q3

REPORT INFORMATION
  Report Type: Spontaneous
  Country: JP (occurrence: JP)
  Receive Date: 20150323
  Receipt Date: 20150723
  Transmission Date: 20151125
  Serious: Yes (Other)
  Sender: FDA-Public Use
  Company Number: JP-009507513-1503JPN007184

PATIENT
  Age: 32 Year
  Sex: Female

DRUGS (5)
  1. DIAZOXIDE CAPSULES 25 MG ^MSD^ [Suspect]
     Active Substance: DIAZOXIDE
     Indication: HYPOGLYCAEMIA
     Dosage: 75 MG, QD
     Route: 048
     Dates: start: 20121216, end: 20121216
  2. OCTREOTIDE ACETATE. [Concomitant]
     Active Substance: OCTREOTIDE ACETATE
     Indication: HYPOGLYCAEMIA
     Dosage: 100 MICROGRAM, QD
     Route: 058
     Dates: start: 20121214, end: 20121214
  3. DIAZOXIDE CAPSULES 25 MG ^MSD^ [Suspect]
     Active Substance: DIAZOXIDE
     Indication: HYPOGLYCAEMIA
     Dosage: 75 MG, TID
     Route: 048
     Dates: start: 20121217, end: 20121218
  4. OCTREOTIDE ACETATE. [Concomitant]
     Active Substance: OCTREOTIDE ACETATE
     Dosage: 150 MICROGRAM, QD
     Route: 058
     Dates: start: 20121215, end: 20121215
  5. DEXTROSE. [Concomitant]
     Active Substance: DEXTROSE
     Dosage: 200KCAL/DAY, DIVIDED DOSE FREQUENCY UNKNOWN
     Route: 041

REACTIONS (1)
  - Pancytopenia [Recovered/Resolved]

NARRATIVE: CASE EVENT DATE: 20121218
